FAERS Safety Report 10235450 (Version 1)
Quarter: 2014Q2

REPORT INFORMATION
  Report Type: Spontaneous
  Country: GB (occurrence: GB)
  Receive Date: 20140613
  Receipt Date: 20140613
  Transmission Date: 20141212
  Serious: Yes (Other)
  Sender: FDA-Public Use
  Company Number: GB-009507513-1406GBR006067

PATIENT
  Age: 59 Year
  Sex: Male

DRUGS (1)
  1. JANUVIA [Suspect]
     Dosage: UNK
     Route: 048

REACTIONS (3)
  - Head and neck cancer [Unknown]
  - Dysphagia [Unknown]
  - Radiotherapy [Unknown]
